FAERS Safety Report 9303703 (Version 1)
Quarter: 2013Q2

REPORT INFORMATION
  Report Type: Spontaneous
  Country: AT (occurrence: AT)
  Receive Date: 20130522
  Receipt Date: 20130522
  Transmission Date: 20140414
  Serious: Yes (Hospitalization)
  Sender: FDA-Public Use
  Company Number: AT-TEVA-405370ISR

PATIENT
  Age: 23 Year
  Sex: Male
  Weight: 76.4 kg

DRUGS (2)
  1. DICLOFENAC [Suspect]
     Indication: PAIN
  2. FLOXAPEN [Concomitant]

REACTIONS (1)
  - Drug eruption [Recovered/Resolved]
